FAERS Safety Report 23193707 (Version 1)
Quarter: 2023Q4

REPORT INFORMATION
  Report Type: Report from Study
  Country: US (occurrence: US)
  Receive Date: 20231116
  Receipt Date: 20231116
  Transmission Date: 20240110
  Serious: Yes (Other)
  Sender: FDA-Public Use
  Company Number: US-ABBVIE-5496082

PATIENT
  Sex: Male

DRUGS (1)
  1. HUMIRA [Suspect]
     Active Substance: ADALIMUMAB
     Indication: Crohn^s disease
     Route: 058
     Dates: end: 20201109

REACTIONS (6)
  - Nephrolithiasis [Unknown]
  - Pain [Unknown]
  - Drug ineffective [Unknown]
  - Arthralgia [Unknown]
  - Muscle spasms [Unknown]
  - Grip strength decreased [Unknown]
